FAERS Safety Report 25422912 (Version 1)
Quarter: 2025Q2

REPORT INFORMATION
  Report Type: Spontaneous
  Country: AU (occurrence: AU)
  Receive Date: 20250611
  Receipt Date: 20250611
  Transmission Date: 20250717
  Serious: Yes (Other)
  Sender: PFIZER
  Company Number: AU-PFIZER INC-PV202500069499

PATIENT
  Age: 60 Year
  Sex: Female

DRUGS (9)
  1. MAGNESIUM SULFATE [Suspect]
     Active Substance: MAGNESIUM SULFATE
     Indication: Mineral supplementation
  2. MAGNESIUM SULFATE [Suspect]
     Active Substance: MAGNESIUM SULFATE
  3. ALENDRONATE [Suspect]
     Active Substance: ALENDRONATE SODIUM
     Indication: Osteoporosis
  4. RAMIPRIL [Concomitant]
     Active Substance: RAMIPRIL
  5. PRAVASTATIN [Concomitant]
     Active Substance: PRAVASTATIN
  6. GEMFIBROZIL [Concomitant]
     Active Substance: GEMFIBROZIL
  7. ACTRAPID [Concomitant]
     Active Substance: INSULIN HUMAN
     Indication: Type 1 diabetes mellitus
  8. PROTAPHANE [Concomitant]
     Active Substance: INSULIN HUMAN
     Indication: Type 1 diabetes mellitus
  9. NIMODIPINE [Concomitant]
     Active Substance: NIMODIPINE

REACTIONS (2)
  - Hypocalcaemia [Recovered/Resolved]
  - Blood parathyroid hormone decreased [Recovered/Resolved]
